FAERS Safety Report 5485187-4 (Version None)
Quarter: 2007Q4

REPORT INFORMATION
  Report Type: 
  Country: None (occurrence: None)
  Receive Date: 20071015
  Receipt Date: 20071005
  Transmission Date: 20080405
  Serious: Yes (Hospitalization)
  Sender: FDA-Public Use
  Company Number: US-JNJFOC-20071002052

PATIENT
  Sex: Female
  Weight: 81.19 kg

DRUGS (1)
  1. REMICADE [Suspect]
     Indication: RHEUMATOID ARTHRITIS
     Route: 042

REACTIONS (3)
  - DECREASED IMMUNE RESPONSIVENESS [None]
  - DIZZINESS [None]
  - VISION BLURRED [None]
